FAERS Safety Report 26128860 (Version 1)
Quarter: 2025Q4

REPORT INFORMATION
  Report Type: Spontaneous
  Country: CN (occurrence: CN)
  Receive Date: 20251208
  Receipt Date: 20251208
  Transmission Date: 20260118
  Serious: Yes (Other)
  Sender: GE HEALTHCARE
  Company Number: None

PATIENT
  Age: 63 Year
  Sex: Male
  Weight: 65 kg

DRUGS (2)
  1. OMNIPAQUE [Suspect]
     Active Substance: IOHEXOL
     Indication: Angiogram cerebral
     Dosage: 180 ML, TOTAL
     Route: 013
     Dates: start: 20251118
  2. OMNIPAQUE [Suspect]
     Active Substance: IOHEXOL
     Indication: Cerebral artery stent insertion

REACTIONS (5)
  - Cerebral reperfusion injury [Recovering/Resolving]
  - Contrast encephalopathy [Recovering/Resolving]
  - Trance [Recovering/Resolving]
  - Patient uncooperative [Recovering/Resolving]
  - Dysphoria [Recovering/Resolving]

NARRATIVE: CASE EVENT DATE: 20251118
